FAERS Safety Report 10878784 (Version 1)
Quarter: 2015Q1

REPORT INFORMATION
  Report Type: Spontaneous
  Country: NL (occurrence: NL)
  Receive Date: 20150302
  Receipt Date: 20150302
  Transmission Date: 20150721
  Serious: Yes (Other)
  Sender: FDA-Public Use
  Company Number: NL-TEVA-544209ISR

PATIENT
  Age: 62 Year
  Sex: Male
  Weight: 85 kg

DRUGS (4)
  1. SIMVASTATINE TEVA TABLET FILMOMHULD 40MG [Suspect]
     Active Substance: SIMVASTATIN
     Indication: HYPERCHOLESTEROLAEMIA
     Dosage: 40 MILLIGRAM DAILY; ONCE DAILY ONE PIECE
     Route: 048
     Dates: start: 20121203
  2. ASCAL CARDIO SACHET 100MG [Concomitant]
     Dosage: 100 MILLIGRAM DAILY; ONCE DAILY ONE PIECE
     Route: 048
     Dates: start: 2010
  3. BISOPROLOLFUMARAAT SANDOZ TABLET  2,5MG [Concomitant]
     Dosage: 2.5 MILLIGRAM DAILY; ONCE DAILY ONE PIECE
     Route: 048
     Dates: start: 20120426
  4. FLECAINIDEACETAAT TEVA RETARD CAPSULE 200MG [Concomitant]
     Dosage: 200 MILLIGRAM DAILY; ONCE DAILY ONE PIECE, PROLONGED-RELEASE CAPSULE
     Route: 048
     Dates: start: 20120426

REACTIONS (1)
  - Polyneuropathy [Recovering/Resolving]

NARRATIVE: CASE EVENT DATE: 20141101
